FAERS Safety Report 11048278 (Version 1)
Quarter: 2015Q2

REPORT INFORMATION
  Report Type: Spontaneous
  Country: CL (occurrence: CL)
  Receive Date: 20150420
  Receipt Date: 20150420
  Transmission Date: 20150821
  Serious: Yes (Death, Disabling)
  Sender: FDA-Public Use
  Company Number: CL-GE HEALTHCARE MEDICAL DIAGNOSTICS-OSCN-PR-1504L-0081

PATIENT
  Age: 32 Year
  Sex: Male

DRUGS (3)
  1. OMNISCAN [Suspect]
     Active Substance: GADODIAMIDE
     Indication: PRODUCT USED FOR UNKNOWN INDICATION
     Route: 065
     Dates: start: 200602, end: 200602
  2. OMNISCAN [Suspect]
     Active Substance: GADODIAMIDE
     Indication: DIAGNOSTIC PROCEDURE
  3. OMNISCAN [Suspect]
     Active Substance: GADODIAMIDE
     Indication: PULMONARY EMBOLISM
     Route: 065
     Dates: start: 200611, end: 200611

REACTIONS (4)
  - Nephrogenic systemic fibrosis [Not Recovered/Not Resolved]
  - Hip fracture [Unknown]
  - Fall [Unknown]
  - Cardiac failure [Fatal]

NARRATIVE: CASE EVENT DATE: 200611
